FAERS Safety Report 4884176-8 (Version None)
Quarter: 2005Q4

REPORT INFORMATION
  Report Type: 
  Country: None (occurrence: None)
  Receive Date: 20051201
  Receipt Date: 20050909
  Transmission Date: 20060501
  Serious: No
  Sender: FDA-Public Use
  Company Number: 2005PV001975

PATIENT
  Sex: Female

DRUGS (5)
  1. BYETTA [Suspect]
     Dosage: SEE IMAGE
     Route: 058
     Dates: end: 20050901
  2. BYETTA [Suspect]
     Dosage: SEE IMAGE
     Route: 058
     Dates: start: 20050901
  3. PREDNISONE [Concomitant]
  4. HUMALOG [Concomitant]
  5. LANTUS [Concomitant]

REACTIONS (2)
  - BLOOD GLUCOSE INCREASED [None]
  - NAUSEA [None]
